FAERS Safety Report 6729778-9 (Version None)
Quarter: 2010Q2

REPORT INFORMATION
  Report Type: 
  Country: None (occurrence: None)
  Receive Date: 20100518
  Receipt Date: 20100504
  Transmission Date: 20101027
  Serious: Yes (Other)
  Sender: FDA-Public Use
  Company Number: GB-MEDIMMUNE-MEDI-0011177

PATIENT

DRUGS (1)
  1. SYNAGIS [Suspect]
     Route: 065
     Dates: start: 20091001, end: 20091112

REACTIONS (3)
  - MALAISE [None]
  - RESPIRATORY SYNCYTIAL VIRUS TEST POSITIVE [None]
  - RESPIRATORY TRACT INFECTION [None]
